FAERS Safety Report 9178870 (Version 1)
Quarter: 2012Q4

REPORT INFORMATION
  Report Type: 
  Country: GB (occurrence: GB)
  Receive Date: 20121029
  Receipt Date: 20121029
  Transmission Date: 20130627
  Serious: Yes (Other)
  Sender: FDA-Public Use
  Company Number: PHFR2012GB005513

PATIENT
  Sex: Female

DRUGS (1)
  1. VOLTAROL [Suspect]

REACTIONS (1)
  - Mental disorder [Unknown]
